FAERS Safety Report 4310021-5 (Version None)
Quarter: 2004Q1

REPORT INFORMATION
  Report Type: 
  Country: None (occurrence: None)
  Receive Date: 20040301
  Receipt Date: 20040109
  Transmission Date: 20041129
  Serious: No
  Sender: FDA-Public Use
  Company Number: WAES0309USA01912

PATIENT
  Age: 70 Year
  Sex: Male
  Weight: 117.028 kg

DRUGS (9)
  1. ZETIA [Suspect]
     Indication: BLOOD CHOLESTEROL INCREASED
     Dosage: 10 MG/DAILY/PO
     Route: 048
     Dates: start: 20030501, end: 20030101
  2. ZETIA [Suspect]
     Indication: BLOOD CHOLESTEROL INCREASED
     Dosage: 10 MG/DAILY/PO
     Route: 048
     Dates: start: 20030101, end: 20030914
  3. ALTACE [Concomitant]
  4. AMARYL [Concomitant]
  5. NEXIUM [Concomitant]
  6. PRAVACHOL [Concomitant]
  7. TIAZAC [Concomitant]
  8. ASPIRIN [Concomitant]
  9. VITAMIN E [Concomitant]

REACTIONS (1)
  - FAECES DISCOLOURED [None]
